FAERS Safety Report 21703714 (Version 1)
Quarter: 2022Q4

REPORT INFORMATION
  Report Type: Spontaneous
  Country: US (occurrence: US)
  Receive Date: 20221209
  Receipt Date: 20221209
  Transmission Date: 20230113
  Serious: Yes (Other)
  Sender: FDA-Public Use
  Company Number: US-LUPIN PHARMACEUTICALS INC.-2022-14167

PATIENT
  Sex: Female
  Weight: 48.1 kg

DRUGS (5)
  1. HYDROXYCHLOROQUINE [Suspect]
     Active Substance: HYDROXYCHLOROQUINE
     Indication: Product used for unknown indication
     Dosage: 8.3 MILLIGRAM PER KILOGRAM PER DAY (BEFORE FOLLOW-UP)
     Route: 065
  2. HYDROXYCHLOROQUINE [Suspect]
     Active Substance: HYDROXYCHLOROQUINE
     Dosage: 8.2 MILLIGRAM PER KILOGRAM PER DAY (DURING FOLLOW-UP)
     Route: 065
  3. HYDROXYCHLOROQUINE [Suspect]
     Active Substance: HYDROXYCHLOROQUINE
     Dosage: 6.2 MILLIGRAM PER KILOGRAM PER DAY (DURING FOLLOW-UP)
     Route: 065
  4. HYDROXYCHLOROQUINE [Suspect]
     Active Substance: HYDROXYCHLOROQUINE
     Dosage: 4.2 MILLIGRAM PER KILOGRAM PER DAY (DURING FOLLOW-UP)
     Route: 065
  5. QUINACRINE [Concomitant]
     Active Substance: QUINACRINE
     Indication: Product used for unknown indication
     Dosage: 100 MG, QD
     Route: 065

REACTIONS (2)
  - Retinopathy [Unknown]
  - Toxicity to various agents [Unknown]
